FAERS Safety Report 9120707 (Version 1)
Quarter: 2013Q1

REPORT INFORMATION
  Report Type: Spontaneous
  Country: IT (occurrence: IT)
  Receive Date: 20130226
  Receipt Date: 20130226
  Transmission Date: 20140127
  Serious: Yes (Hospitalization)
  Sender: FDA-Public Use
  Company Number: IT-BAYER-2013-025020

PATIENT
  Age: 64 Year
  Sex: Male

DRUGS (5)
  1. CARDIOASPIRIN [Suspect]
     Indication: THROMBOSIS PROPHYLAXIS
     Dosage: 100 MG, QD
     Route: 048
     Dates: start: 20120101, end: 20130101
  2. METFORMIN [Concomitant]
     Dosage: 850 MG, QD
     Route: 048
  3. TAVOR [LORAZEPAM] [Concomitant]
     Dosage: 1 MG, QD
     Route: 048
  4. APIDRA [Concomitant]
     Dosage: 5 IU, QD
     Route: 058
  5. SOLOSA [Concomitant]
     Dosage: UNK MG, QD
     Route: 048

REACTIONS (2)
  - Acute coronary syndrome [Unknown]
  - Chest pain [Unknown]
